FAERS Safety Report 19241865 (Version 1)
Quarter: 2021Q2

REPORT INFORMATION
  Report Type: Spontaneous
  Country: US (occurrence: US)
  Receive Date: 20210511
  Receipt Date: 20210511
  Transmission Date: 20210717
  Serious: Yes (Death)
  Sender: FDA-Public Use
  Company Number: None

PATIENT
  Age: 76 Year
  Sex: Female
  Weight: 71.64 kg

DRUGS (16)
  1. K?TAB 20 MEQ [Concomitant]
  2. PROCHLORPERAZINE 10MG [Concomitant]
  3. ASPIRIN 81MG [Concomitant]
     Active Substance: ASPIRIN
  4. LYRICA [Concomitant]
     Active Substance: PREGABALIN
  5. ATORVASTATIN 80MG [Concomitant]
     Active Substance: ATORVASTATIN
  6. FISH OIL 1200MG [Concomitant]
  7. HYDROCODONE/ACETAMINOPHEN 5?325MG [Concomitant]
  8. MULTIVITAMIN [Concomitant]
     Active Substance: VITAMINS
  9. LISINOPRIL. [Concomitant]
     Active Substance: LISINOPRIL
  10. MAGNESIUM OXIDE 400MG [Concomitant]
     Active Substance: MAGNESIUM OXIDE
  11. ONDANSETRON 4MG [Concomitant]
     Active Substance: ONDANSETRON
  12. XARELTO [Concomitant]
     Active Substance: RIVAROXABAN
  13. TRESIBA 100U/ML [Concomitant]
  14. ERLOTINIB [Suspect]
     Active Substance: ERLOTINIB
     Indication: PANCREATIC CARCINOMA
     Route: 048
     Dates: start: 20210413, end: 20210502
  15. NOVOLOG FLEXPEN 100UNIT/ML [Concomitant]
  16. TRAMADOL 50MG [Concomitant]
     Active Substance: TRAMADOL

REACTIONS (1)
  - Death [None]

NARRATIVE: CASE EVENT DATE: 20210502
